FAERS Safety Report 10509079 (Version 1)
Quarter: 2014Q4

REPORT INFORMATION
  Report Type: Spontaneous
  Country: IT (occurrence: IT)
  Receive Date: 20141009
  Receipt Date: 20141009
  Transmission Date: 20150528
  Serious: Yes (Hospitalization)
  Sender: FDA-Public Use
  Company Number: IT-PFIZER INC-2014272971

PATIENT
  Age: 63 Year
  Sex: Female

DRUGS (4)
  1. OTREON [Suspect]
     Active Substance: CEFPODOXIME
     Dosage: 100 MG, TOTAL
     Route: 048
     Dates: start: 20140923, end: 20140923
  2. OTREON [Suspect]
     Active Substance: CEFPODOXIME
     Indication: EAR INFECTION
     Dosage: 100 MG, AS NEEDED
     Route: 048
  3. BIFRIZIDE [Suspect]
     Active Substance: HYDROCHLOROTHIAZIDE
     Indication: HYPERTENSION
     Dosage: 1 DF, DAILY
     Route: 048
  4. BIFRIZIDE [Suspect]
     Active Substance: HYDROCHLOROTHIAZIDE
     Dosage: 4 DF, TOTAL
     Route: 048
     Dates: start: 20140923, end: 20140923

REACTIONS (4)
  - Hyponatraemia [Unknown]
  - Vomiting [Unknown]
  - Drug abuse [Unknown]
  - Asthenia [Unknown]

NARRATIVE: CASE EVENT DATE: 20140923
